FAERS Safety Report 16913486 (Version 3)
Quarter: 2019Q4

REPORT INFORMATION
  Report Type: Spontaneous
  Country: US (occurrence: US)
  Receive Date: 20191014
  Receipt Date: 20191113
  Transmission Date: 20200122
  Serious: Yes (Hospitalization, Other)
  Sender: FDA-Public Use
  Company Number: US-SUNOVION-2019SUN004270

PATIENT
  Age: 73 Year
  Sex: Male

DRUGS (1)
  1. LONHALA MAGNAIR [Suspect]
     Active Substance: GLYCOPYRROLATE
     Dosage: 25 MCG/ML, BID
     Route: 055
     Dates: start: 201904

REACTIONS (7)
  - Lung disorder [Unknown]
  - Respiratory tract procedural complication [Unknown]
  - Therapy cessation [Unknown]
  - Pneumothorax [Unknown]
  - Vascular graft [Unknown]
  - Herpes zoster [Unknown]
  - Drug ineffective [Unknown]
